FAERS Safety Report 22040902 (Version 1)
Quarter: 2023Q1

REPORT INFORMATION
  Report Type: Spontaneous
  Country: AU (occurrence: AU)
  Receive Date: 20230227
  Receipt Date: 20230227
  Transmission Date: 20230417
  Serious: Yes (Other)
  Sender: FDA-Public Use
  Company Number: AU-MYLANLABS-2023M1021007

PATIENT
  Age: 53 Year
  Sex: Male

DRUGS (5)
  1. FLUDARABINE [Suspect]
     Active Substance: FLUDARABINE PHOSPHATE
     Indication: Acute myelomonocytic leukaemia
     Dosage: UNK; PART OF FLAG-IDA REGIMEN
     Route: 065
  2. IDARUBICIN [Suspect]
     Active Substance: IDARUBICIN
     Indication: Acute myelomonocytic leukaemia
     Dosage: UNK; PART OF FLAG-IDA REGIMEN
     Route: 065
  3. CYTARABINE [Suspect]
     Active Substance: CYTARABINE
     Indication: Acute myelomonocytic leukaemia
     Dosage: UNK; INDUCTION THERAPY
     Route: 065
  4. CYTARABINE [Suspect]
     Active Substance: CYTARABINE
     Dosage: UNK; SALVAGE REINDUCTION THERAPY (PART OF FLAG-IDA REGIMEN)
     Route: 065
  5. DAUNORUBICIN [Suspect]
     Active Substance: DAUNORUBICIN
     Indication: Acute myelomonocytic leukaemia
     Dosage: UNK; INDUCTION THERAPY
     Route: 065

REACTIONS (1)
  - Drug ineffective [Unknown]
